FAERS Safety Report 9376233 (Version 12)
Quarter: 2014Q2

REPORT INFORMATION
  Report Type: Report from Study
  Country: CA (occurrence: CA)
  Receive Date: 20130701
  Receipt Date: 20140613
  Transmission Date: 20141212
  Serious: Yes (Hospitalization, Other)
  Sender: FDA-Public Use
  Company Number: CA-ROCHE-1242831

PATIENT
  Age: 68 Year
  Sex: Female
  Weight: 67.7 kg

DRUGS (21)
  1. ACTEMRA [Suspect]
     Indication: RHEUMATOID ARTHRITIS
     Route: 042
     Dates: start: 20120518
  2. RITUXAN [Suspect]
     Indication: RHEUMATOID ARTHRITIS
     Route: 042
     Dates: start: 20110623, end: 20110707
  3. ARTHROTEC [Concomitant]
  4. METHOTREXATE [Concomitant]
  5. LANTUS [Concomitant]
  6. METFORMIN [Concomitant]
  7. LUVOX [Concomitant]
  8. OMEPRAZOLE [Concomitant]
  9. CRESTOR [Concomitant]
  10. GABAPENTIN [Concomitant]
  11. PREDNISONE [Concomitant]
  12. TYLENOL #3 (CANADA) [Concomitant]
  13. ACETAMINOPHEN [Concomitant]
  14. DOCUSATE [Concomitant]
  15. VITAMIN B6 [Concomitant]
  16. VITAMIN B12 [Concomitant]
  17. COVERSYL [Concomitant]
  18. DIAMICRON MR [Concomitant]
     Indication: DIABETES MELLITUS
  19. CELEBREX [Concomitant]
     Indication: HEPATITIS
  20. DIPHENHYDRAMINE HCL [Concomitant]
     Route: 048
     Dates: start: 20110623, end: 20110707
  21. METHYLPREDNISOLONE [Concomitant]
     Route: 042
     Dates: start: 20110623, end: 20110707

REACTIONS (13)
  - Femur fracture [Unknown]
  - Staphylococcal infection [Not Recovered/Not Resolved]
  - Osteoarthritis [Unknown]
  - Fall [Unknown]
  - Urinary tract infection [Unknown]
  - Hypotension [Recovered/Resolved]
  - Localised infection [Recovering/Resolving]
  - Rheumatoid arthritis [Unknown]
  - Diabetes mellitus [Unknown]
  - Arthralgia [Recovering/Resolving]
  - Joint swelling [Recovering/Resolving]
  - Nasopharyngitis [Unknown]
  - Poor venous access [Unknown]
